FAERS Safety Report 23919850 (Version 2)
Quarter: 2024Q2

REPORT INFORMATION
  Report Type: Spontaneous
  Country: US (occurrence: US)
  Receive Date: 20240530
  Receipt Date: 20240605
  Transmission Date: 20240715
  Serious: Yes (Other)
  Sender: FDA-Public Use
  Company Number: US-JNJFOC-20240572851

PATIENT
  Sex: Female

DRUGS (4)
  1. TOPAMAX [Suspect]
     Active Substance: TOPIRAMATE
     Indication: Seizure
     Dosage: GTIN- 00350458642650 FOR 200 MG
     Route: 048
  2. TOPAMAX [Suspect]
     Active Substance: TOPIRAMATE
     Dosage: GTIN- 00350458640656 FOR 50 MG TABLETS
     Route: 048
  3. KEPPRA [Concomitant]
     Active Substance: LEVETIRACETAM
  4. VIMPAT [Concomitant]
     Active Substance: LACOSAMIDE

REACTIONS (1)
  - Seizure [Unknown]
